FAERS Safety Report 8857712 (Version 2)
Quarter: 2012Q4

REPORT INFORMATION
  Report Type: 
  Country: US (occurrence: US)
  Receive Date: 20121024
  Receipt Date: 20121109
  Transmission Date: 20130627
  Serious: Yes (Hospitalization)
  Sender: FDA-Public Use
  Company Number: US-B.I. PHARMACEUTICALS,INC./RIDGEFIELD-2012-BP-25887BP

PATIENT
  Sex: Male
  Weight: 83.91 kg

DRUGS (6)
  1. PRADAXA [Suspect]
     Indication: ATRIAL FIBRILLATION
     Dosage: 300 mg
     Dates: start: 201110
  2. SOTALOL [Concomitant]
     Indication: HYPERTENSION
     Dosage: 240 mg
     Dates: start: 2011
  3. PAROXETINE [Concomitant]
     Indication: SLEEP DISORDER
     Dosage: 20 mg
     Dates: start: 2010
  4. PRAVASTATIN [Concomitant]
     Indication: BLOOD CHOLESTEROL INCREASED
     Dosage: 20 mg
     Dates: start: 2011
  5. ASPIRIN [Concomitant]
  6. MULTIPLE SUPPLEMENTS [Concomitant]

REACTIONS (4)
  - Atrial fibrillation [Unknown]
  - Bradycardia [Unknown]
  - Sinus arrest [Unknown]
  - Presyncope [Unknown]
